FAERS Safety Report 5948398-7 (Version None)
Quarter: 2008Q4

REPORT INFORMATION
  Report Type: 
  Country: None (occurrence: None)
  Receive Date: 20081111
  Receipt Date: 20081028
  Transmission Date: 20090506
  Serious: Yes (Life-Threatening)
  Sender: FDA-Public Use
  Company Number: JP-ROCHE-593629

PATIENT
  Sex: Female

DRUGS (5)
  1. DIAZEPAM [Suspect]
     Indication: OESOPHAGEAL CARCINOMA
     Dosage: GIVEN WITH 10 ML SALINE OVER A FEW SECONDS.
     Route: 042
     Dates: start: 20081016, end: 20081016
  2. OPYSTAN [Suspect]
     Indication: OESOPHAGEAL CARCINOMA
     Route: 042
     Dates: start: 20081016, end: 20081016
  3. SESDEN [Concomitant]
     Indication: OESOPHAGEAL CARCINOMA
     Route: 042
     Dates: start: 20081016, end: 20081016
  4. NALOXONE HYDROCHLORIDE [Concomitant]
     Indication: OESOPHAGEAL CARCINOMA
     Route: 042
     Dates: start: 20081016, end: 20081016
  5. FLUMAZENIL [Concomitant]
     Indication: OESOPHAGEAL CARCINOMA
     Route: 042
     Dates: start: 20081016, end: 20081016

REACTIONS (2)
  - ANAPHYLACTIC SHOCK [None]
  - RESPIRATORY ARREST [None]
